FAERS Safety Report 8798491 (Version 6)
Quarter: 2013Q1

REPORT INFORMATION
  Report Type: Spontaneous
  Country: US (occurrence: US)
  Receive Date: 20120920
  Receipt Date: 20130306
  Transmission Date: 20140127
  Serious: No
  Sender: FDA-Public Use
  Company Number: US-009507513-1209USA007368

PATIENT
  Age: 53 None
  Sex: Female

DRUGS (3)
  1. PEGINTRON [Suspect]
     Indication: HEPATITIS C
     Dosage: 120 MICROGRAM, QW
     Route: 058
     Dates: start: 20120916
  2. TELAPREVIR [Suspect]
     Indication: HEPATITIS C
     Dosage: 750 MG, TID
     Dates: start: 20120916, end: 20121228
  3. RIBASPHERE [Suspect]
     Indication: HEPATITIS C
     Dosage: 400 MG IN THE AM AND 600 MG IN THE PM
     Dates: start: 20120916

REACTIONS (46)
  - Aphagia [Unknown]
  - Vomiting [Unknown]
  - Bronchitis [Unknown]
  - Rectal haemorrhage [Unknown]
  - Pain [Unknown]
  - Injection site rash [Unknown]
  - Proctalgia [Unknown]
  - Dysgeusia [Unknown]
  - Crying [Unknown]
  - Asthma [Unknown]
  - Wheezing [Unknown]
  - Somnolence [Unknown]
  - Insomnia [Unknown]
  - Weight decreased [Unknown]
  - Pyrexia [Unknown]
  - Diarrhoea [Unknown]
  - Nausea [Unknown]
  - Cough [Unknown]
  - Fatigue [Unknown]
  - Rash macular [Unknown]
  - Rash [Unknown]
  - Headache [Unknown]
  - Dizziness [Unknown]
  - Asthenia [Unknown]
  - Pruritus [Unknown]
  - Decreased appetite [Unknown]
  - Fatigue [Unknown]
  - Dizziness [Unknown]
  - Fatigue [Unknown]
  - Diarrhoea [Unknown]
  - Nausea [Unknown]
  - Asthenia [Unknown]
  - Pyrexia [Unknown]
  - Dizziness [Unknown]
  - Dry skin [Unknown]
  - Pruritus [Unknown]
  - Dry skin [Unknown]
  - Pruritus [Unknown]
  - Muscle spasms [Unknown]
  - Asthenia [Unknown]
  - Irritability [Unknown]
  - Nausea [Unknown]
  - Cough [Unknown]
  - Gastrointestinal disorder [Unknown]
  - Decreased appetite [Unknown]
  - Weight decreased [Unknown]
